FAERS Safety Report 9369975 (Version 3)
Quarter: 2013Q3

REPORT INFORMATION
  Report Type: Spontaneous
  Country: US (occurrence: US)
  Receive Date: 20130626
  Receipt Date: 20130821
  Transmission Date: 20140515
  Serious: Yes (Other)
  Sender: FDA-Public Use
  Company Number: US-MYLANLABS-2013S1013152

PATIENT
  Age: 82 Year
  Sex: Female
  Weight: 72.58 kg

DRUGS (15)
  1. CARBIDOPA AND LEVODOPA EXTENDED-RELEASE TABLETS [Suspect]
     Indication: PARKINSON^S DISEASE
     Route: 048
     Dates: start: 20130603, end: 20130608
  2. FENTANYL TRANSDERMAL SYSTEM [Suspect]
     Indication: BACK PAIN
     Dosage: Q72H
     Route: 062
     Dates: start: 20130529
  3. FENTANYL TRANSDERMAL SYSTEM [Suspect]
     Dosage: Q72H
     Route: 062
     Dates: start: 20130605
  4. DOXYCYCLINE CAPSULES USP [Suspect]
     Indication: DIVERTICULITIS
     Route: 048
     Dates: start: 20130603, end: 20130607
  5. METOPROLOL [Concomitant]
     Dosage: ONE TABLET IN PM AND 1/2 TABLETS IN THE AM
  6. ISOSORBIDE [Concomitant]
  7. NITRO [Concomitant]
  8. ASPIRIN [Concomitant]
  9. FUROSEMIDE W/POTASSIUM [Concomitant]
  10. TYLENOL [Concomitant]
  11. GLUCOSAMINE + CHONDROITIN [Concomitant]
  12. MUSCLE AND JOINT [Concomitant]
     Dosage: LIQUID
  13. LIDOCAINE [Concomitant]
     Dosage: CREAM
  14. FISH OIL [Concomitant]
  15. OMEPRAZOLE [Concomitant]

REACTIONS (14)
  - Headache [Recovering/Resolving]
  - Confusional state [Recovering/Resolving]
  - Insomnia [Recovered/Resolved]
  - Psychomotor hyperactivity [Recovering/Resolving]
  - Abdominal pain upper [Recovered/Resolved]
  - Nausea [Recovered/Resolved]
  - Muscle spasms [Recovered/Resolved]
  - Muscle spasms [Recovered/Resolved]
  - Malaise [Recovering/Resolving]
  - Chills [Recovered/Resolved]
  - Hyperhidrosis [Recovered/Resolved]
  - Hyperhidrosis [Recovered/Resolved]
  - Feeling abnormal [Recovered/Resolved]
  - Decreased appetite [Recovered/Resolved]
